FAERS Safety Report 9502606 (Version 1)
Quarter: 2013Q3

REPORT INFORMATION
  Report Type: Spontaneous
  Country: BE (occurrence: BE)
  Receive Date: 20130906
  Receipt Date: 20130906
  Transmission Date: 20140515
  Serious: Yes (Death)
  Sender: FDA-Public Use
  Company Number: BE-JNJFOC-20130816457

PATIENT
  Age: 60 Year
  Sex: Female
  Weight: 80 kg

DRUGS (4)
  1. INVEGA [Suspect]
     Indication: SCHIZOPHRENIA
     Route: 048
  2. INVEGA [Suspect]
     Indication: SCHIZOPHRENIA
     Route: 048
     Dates: start: 20130726
  3. ALPRAZOLAM [Concomitant]
     Indication: ANXIETY
     Route: 048
     Dates: end: 20130728
  4. CONTRAMAL RETARD [Concomitant]
     Indication: OSTEOARTHRITIS
     Route: 048
     Dates: end: 20130728

REACTIONS (1)
  - Overdose [Fatal]
